FAERS Safety Report 7243637-7 (Version None)
Quarter: 2011Q1

REPORT INFORMATION
  Report Type: 
  Country: None (occurrence: None)
  Receive Date: 20110125
  Receipt Date: 20110118
  Transmission Date: 20110831
  Serious: Yes (Other)
  Sender: FDA-Public Use
  Company Number: US-SHIRE-ALL1-2011-00209

PATIENT
  Sex: Male

DRUGS (1)
  1. ELAPRASE [Suspect]
     Indication: MUCOPOLYSACCHARIDOSIS II
     Dosage: 6 MG, 1X/WEEK
     Route: 041
     Dates: start: 20090502

REACTIONS (3)
  - KIDNEY FIBROSIS [None]
  - HYPERTENSION [None]
  - CARDIAC VALVE DISEASE [None]
